FAERS Safety Report 14543295 (Version 2)
Quarter: 2019Q1

REPORT INFORMATION
  Report Type: Spontaneous
  Country: US (occurrence: US)
  Receive Date: 20180216
  Receipt Date: 20190220
  Transmission Date: 20190417
  Serious: Yes (Other)
  Sender: FDA-Public Use
  Company Number: US-LANTHEUS-LMI-2017-00626

PATIENT
  Age: 48 Year
  Sex: Male
  Weight: 96 kg

DRUGS (4)
  1. COREG [Concomitant]
     Active Substance: CARVEDILOL
     Indication: PRODUCT USED FOR UNKNOWN INDICATION
     Dosage: 6.25 MG, BID
     Route: 048
  2. DEFINITY [Suspect]
     Active Substance: PERFLUTREN
     Indication: ECHOCARDIOGRAM
     Dosage: 4 ML (1.3 ML DEFINITY PREPARED IN 7 ML DILUENT)
     Route: 040
     Dates: start: 20171121, end: 20171121
  3. LIPITOR [Concomitant]
     Active Substance: ATORVASTATIN CALCIUM
     Indication: PRODUCT USED FOR UNKNOWN INDICATION
     Dosage: 80 MG, QD
     Route: 048
  4. ASA [Concomitant]
     Active Substance: ASPIRIN
     Indication: PRODUCT USED FOR UNKNOWN INDICATION
     Dosage: UNK
     Route: 048

REACTIONS (20)
  - Seizure [Not Recovered/Not Resolved]
  - Paraesthesia [Recovered/Resolved]
  - Vertigo [Not Recovered/Not Resolved]
  - Partial seizures [Not Recovered/Not Resolved]
  - Extremity contracture [Recovered/Resolved]
  - Nervous system disorder [Not Recovered/Not Resolved]
  - Back pain [Recovered/Resolved]
  - Dysgeusia [Not Recovered/Not Resolved]
  - Head discomfort [Recovered/Resolved with Sequelae]
  - Dizziness [Not Recovered/Not Resolved]
  - Diplopia [Not Recovered/Not Resolved]
  - Vision blurred [Not Recovered/Not Resolved]
  - Eye movement disorder [Not Recovered/Not Resolved]
  - Flushing [Recovered/Resolved]
  - Tinnitus [Not Recovered/Not Resolved]
  - Erythema [Recovered/Resolved]
  - Deafness [Recovered/Resolved]
  - Feeling hot [Recovered/Resolved]
  - Nausea [Not Recovered/Not Resolved]
  - Pain [Recovered/Resolved]

NARRATIVE: CASE EVENT DATE: 20171121
